FAERS Safety Report 13567610 (Version 1)
Quarter: 2017Q2

REPORT INFORMATION
  Report Type: Spontaneous
  Country: US (occurrence: US)
  Receive Date: 20170522
  Receipt Date: 20170522
  Transmission Date: 20170830
  Serious: No
  Sender: FDA-Public Use
  Company Number: US-TEVA-660479USA

PATIENT
  Age: 26 Year
  Sex: Female
  Weight: 63.56 kg

DRUGS (1)
  1. JUNEL [Suspect]
     Active Substance: ETHINYL ESTRADIOL\NORETHINDRONE ACETATE
     Indication: CONTRACEPTION
     Dosage: 1 MG/20 MCG
     Dates: start: 2014

REACTIONS (1)
  - Rash [Unknown]

NARRATIVE: CASE EVENT DATE: 201604
